FAERS Safety Report 7316076-8 (Version None)
Quarter: 2011Q1

REPORT INFORMATION
  Report Type: 
  Country: None (occurrence: None)
  Receive Date: 20110225
  Receipt Date: 20110216
  Transmission Date: 20110831
  Serious: Yes (Other)
  Sender: FDA-Public Use
  Company Number: GB-JNJFOC-20110206137

PATIENT
  Sex: Male

DRUGS (4)
  1. TELMISARTAN [Concomitant]
     Indication: BLOOD PRESSURE
  2. REGAINE EXTRA STRENGTH [Suspect]
     Indication: PRODUCT USED FOR UNKNOWN INDICATION
     Dosage: REGAINE 5%
     Route: 061
  3. REGAINE EXTRA STRENGTH [Suspect]
     Route: 061
  4. ASPIRIN [Concomitant]
     Indication: PRODUCT USED FOR UNKNOWN INDICATION

REACTIONS (1)
  - ATRIAL FIBRILLATION [None]
